FAERS Safety Report 24098244 (Version 1)
Quarter: 2024Q3

REPORT INFORMATION
  Report Type: Spontaneous
  Country: IL (occurrence: IL)
  Receive Date: 20240716
  Receipt Date: 20240716
  Transmission Date: 20241017
  Serious: Yes (Other)
  Sender: IPSEN
  Company Number: IL-IPSEN Group, Research and Development-2024-14035

PATIENT
  Sex: Female

DRUGS (1)
  1. DYSPORT [Suspect]
     Active Substance: ABOBOTULINUMTOXINA
     Indication: Blepharospasm
     Route: 065

REACTIONS (1)
  - Ophthalmoplegia [Unknown]
